APPROVED DRUG PRODUCT: EPINEPHRINE
Active Ingredient: EPINEPHRINE
Strength: EQ 1MG BASE/ML (EQ 1MG BASE/ML)
Dosage Form/Route: SOLUTION;INTRAMUSCULAR, INTRAVENOUS, SUBCUTANEOUS
Application: A207568 | Product #001
Applicant: AMERICAN REGENT INC
Approved: Jul 6, 2018 | RLD: No | RS: No | Type: DISCN